FAERS Safety Report 9431052 (Version 1)
Quarter: 2013Q3

REPORT INFORMATION
  Report Type: Spontaneous
  Country: US (occurrence: US)
  Receive Date: 20130730
  Receipt Date: 20130730
  Transmission Date: 20140515
  Serious: No
  Sender: FDA-Public Use
  Company Number: US-B.I. PHARMACEUTICALS,INC./RIDGEFIELD-2013-BI-22022BP

PATIENT
  Sex: Male

DRUGS (3)
  1. COMBIVENT [Suspect]
     Dosage: STRENGTH: 20 MCG / 100 MCG;
     Route: 055
     Dates: start: 201306
  2. OXYGEN [Concomitant]
     Route: 055
  3. ADVAIR 250 [Concomitant]
     Route: 055

REACTIONS (2)
  - Dyspnoea [Unknown]
  - Decreased activity [Unknown]
